FAERS Safety Report 23348842 (Version 1)
Quarter: 2023Q4

REPORT INFORMATION
  Report Type: Spontaneous
  Country: ES (occurrence: ES)
  Receive Date: 20231229
  Receipt Date: 20231229
  Transmission Date: 20240109
  Serious: Yes (Death, Life-Threatening, Hospitalization)
  Sender: FDA-Public Use
  Company Number: None

PATIENT
  Age: 48 Year
  Sex: Female

DRUGS (8)
  1. REMICADE [Suspect]
     Active Substance: INFLIXIMAB
     Indication: Immune-mediated myocarditis
     Route: 041
  2. PEMBROLIZUMAB [Suspect]
     Active Substance: PEMBROLIZUMAB
     Indication: Thymoma
     Dosage: PEMBROLIZUMAB 2MG/KG CADA 3 SEMANAS INICIA 2/10/2020
     Route: 042
     Dates: start: 20201002, end: 20201002
  3. PEMBROLIZUMAB [Suspect]
     Active Substance: PEMBROLIZUMAB
     Indication: Thymoma malignant recurrent
  4. PEMBROLIZUMAB [Suspect]
     Active Substance: PEMBROLIZUMAB
     Indication: Metastases to lung
  5. PEMBROLIZUMAB [Suspect]
     Active Substance: PEMBROLIZUMAB
     Indication: Metastases to pleura
  6. METHYLPREDNISOLONE [Concomitant]
     Active Substance: METHYLPREDNISOLONE
     Indication: Immune-mediated myocarditis
     Route: 042
  7. METHYLPREDNISOLONE [Concomitant]
     Active Substance: METHYLPREDNISOLONE
  8. ISOPROTERENOL HYDROCHLORIDE [Concomitant]
     Active Substance: ISOPROTERENOL HYDROCHLORIDE
     Indication: Immune-mediated myocarditis
     Dosage: UNKNOWN
     Route: 042

REACTIONS (10)
  - Myocarditis [Fatal]
  - Hypotension [Unknown]
  - Acute kidney injury [Unknown]
  - Respiratory failure [Unknown]
  - Myasthenia gravis [Fatal]
  - Immune-mediated myocarditis [Fatal]
  - Cardiac failure congestive [Unknown]
  - Cardiogenic shock [Unknown]
  - Atrioventricular block complete [Fatal]
  - Off label use [Unknown]

NARRATIVE: CASE EVENT DATE: 20200101
